FAERS Safety Report 6855863-7 (Version None)
Quarter: 2010Q3

REPORT INFORMATION
  Report Type: 
  Country: None (occurrence: None)
  Receive Date: 20100719
  Receipt Date: 20100713
  Transmission Date: 20110219
  Serious: Yes (Other)
  Sender: FDA-Public Use
  Company Number: US-ASTRAZENECA-2006UW25177

PATIENT
  Age: 45 Year
  Sex: Male
  Weight: 127.9 kg

DRUGS (17)
  1. SEROQUEL [Suspect]
     Indication: SCHIZOPHRENIA
     Dosage: 50-100 MG, DAILY AT NIGHT
     Route: 048
     Dates: start: 20040311
  2. SEROQUEL [Suspect]
     Indication: DEPRESSION
     Dosage: 50-100 MG, DAILY AT NIGHT
     Route: 048
     Dates: start: 20040311
  3. SEROQUEL [Suspect]
     Indication: PSYCHOTIC DISORDER
     Dosage: 50-100 MG, DAILY AT NIGHT
     Route: 048
     Dates: start: 20040311
  4. SEROQUEL [Suspect]
     Route: 048
     Dates: start: 20080306
  5. SEROQUEL [Suspect]
     Route: 048
     Dates: start: 20080306
  6. SEROQUEL [Suspect]
     Route: 048
     Dates: start: 20080306
  7. SEROQUEL [Suspect]
     Route: 048
     Dates: start: 20090630
  8. SEROQUEL [Suspect]
     Route: 048
     Dates: start: 20090630
  9. SEROQUEL [Suspect]
     Route: 048
     Dates: start: 20090630
  10. ZYPREXA [Concomitant]
  11. LASIX [Concomitant]
     Dates: start: 20031107
  12. RISPERDAL [Concomitant]
     Dates: start: 20040301
  13. ZOLOFT [Concomitant]
     Dates: start: 20031107
  14. TRAZODONE HYDROCHLORIDE [Concomitant]
     Dates: start: 20031107
  15. NORVASC [Concomitant]
     Indication: HYPERTENSION
     Dates: start: 20040623
  16. ALBUTEROL [Concomitant]
     Dates: start: 20031106
  17. DILTIAZEM [Concomitant]
     Dates: start: 20031107

REACTIONS (5)
  - DIABETES MELLITUS [None]
  - DIABETIC NEUROPATHY [None]
  - NEUROLEPTIC MALIGNANT SYNDROME [None]
  - NEUROPATHY PERIPHERAL [None]
  - TYPE 2 DIABETES MELLITUS [None]
